FAERS Safety Report 9541905 (Version 3)
Quarter: 2013Q4

REPORT INFORMATION
  Report Type: Spontaneous
  Country: DE (occurrence: None)
  Receive Date: 20130918
  Receipt Date: 20131030
  Transmission Date: 20140711
  Serious: Yes (Other)
  Sender: FDA-Public Use
  Company Number: DSM-2013-00844

PATIENT
  Age: 67 Year
  Sex: Male

DRUGS (1)
  1. VOCADO [Suspect]
     Indication: HYPERTENSION
     Dosage: 20/5 MG (1 IN 1 D), ORAL?
     Route: 048
     Dates: start: 20130718, end: 20130831

REACTIONS (7)
  - Skin exfoliation [None]
  - Dizziness [None]
  - Headache [None]
  - Vision blurred [None]
  - Pruritus [None]
  - Skin burning sensation [None]
  - Herpes zoster [None]
